FAERS Safety Report 10598441 (Version 1)
Quarter: 2014Q4

REPORT INFORMATION
  Report Type: Spontaneous
  Country: US (occurrence: None)
  Receive Date: 20141119
  Receipt Date: 20141119
  Transmission Date: 20150529
  Serious: No
  Sender: FDA-Public Use
  Company Number: 1000070365

PATIENT
  Age: 80 Year
  Sex: Female

DRUGS (5)
  1. ALBUTEROL (ALBUTEROL) (ALBUTEROL) [Concomitant]
     Active Substance: ALBUTEROL
  2. PREDNISONE (PREDNISONE) (PREDNISONE) [Concomitant]
     Active Substance: PREDNISONE
  3. HEARTBURN PILL NOS (HEARTBURN PILL NOS) (HEARTBURN PILL NOS) [Suspect]
     Active Substance: UNSPECIFIED INGREDIENT
  4. TUDORZA PRESSAIR [Suspect]
     Active Substance: ACLIDINIUM BROMIDE
     Indication: CHRONIC OBSTRUCTIVE PULMONARY DISEASE
     Dosage: 800 MCG (400 MCG,2 IN 1 D), RESPIRATORY (INHALATION)
     Route: 055
     Dates: start: 20140831, end: 20140912
  5. HIGH BLOOD PRESSURE MEDICATIONS NOS (HIGH BLOOD PRESSURE MEDICATIONS NOS) (HIGH BLOOD PRESSURE MEDICATIONS NOS) [Concomitant]

REACTIONS (6)
  - Nasal congestion [None]
  - Eye irritation [None]
  - Cough [None]
  - Upper respiratory tract congestion [None]
  - Eyelid oedema [None]
  - Sleep disorder [None]

NARRATIVE: CASE EVENT DATE: 2014
